FAERS Safety Report 13257934 (Version 1)
Quarter: 2017Q1

REPORT INFORMATION
  Report Type: Spontaneous
  Country: US (occurrence: US)
  Receive Date: 20170221
  Receipt Date: 20170221
  Transmission Date: 20170428
  Serious: Yes (Other)
  Sender: FDA-Public Use
  Company Number: US-LUNDBECK-DKLU2026560

PATIENT

DRUGS (2)
  1. KEPPRA [Concomitant]
     Active Substance: LEVETIRACETAM
     Indication: PRODUCT USED FOR UNKNOWN INDICATION
     Route: 065
  2. ONFI [Suspect]
     Active Substance: CLOBAZAM
     Indication: GENERALISED TONIC-CLONIC SEIZURE
     Route: 048
     Dates: start: 2015

REACTIONS (9)
  - Appetite disorder [Unknown]
  - Tooth disorder [Unknown]
  - Libido disorder [Unknown]
  - Seizure [Unknown]
  - Weight increased [Unknown]
  - Fatigue [Unknown]
  - Muscular weakness [Unknown]
  - Mobility decreased [Unknown]
  - Dizziness [Unknown]
